FAERS Safety Report 4928709-1 (Version None)
Quarter: 2006Q1

REPORT INFORMATION
  Report Type: 
  Country: None (occurrence: None)
  Receive Date: 20060227
  Receipt Date: 20060227
  Transmission Date: 20060701
  Serious: Yes (Hospitalization)
  Sender: FDA-Public Use
  Company Number: None

PATIENT
  Age: 57 Year
  Sex: Male
  Weight: 93.441 kg

DRUGS (2)
  1. LINEZOLID 600 MG [Suspect]
     Indication: BURSITIS
     Dosage: 600 MG DAILY PO
     Route: 048
     Dates: start: 20051227, end: 20060126
  2. CIPROFLOXACIN [Suspect]
     Indication: BURSITIS
     Dosage: 500 MG BID PO
     Route: 048

REACTIONS (1)
  - CLOSTRIDIUM COLITIS [None]
